FAERS Safety Report 7465636-2 (Version None)
Quarter: 2011Q2

REPORT INFORMATION
  Report Type: 
  Country: None (occurrence: None)
  Receive Date: 20110509
  Receipt Date: 20110429
  Transmission Date: 20111010
  Serious: Yes (Death)
  Sender: FDA-Public Use
  Company Number: A0853120A

PATIENT
  Sex: Female

DRUGS (1)
  1. AVANDIA [Suspect]
     Indication: TYPE 2 DIABETES MELLITUS
     Dosage: 8MG UNKNOWN
     Route: 048
     Dates: start: 20000401

REACTIONS (7)
  - HYPERTROPHIC CARDIOMYOPATHY [None]
  - HYPERTENSIVE HEART DISEASE [None]
  - CARDIAC FAILURE CONGESTIVE [None]
  - DEATH [None]
  - UNRESPONSIVE TO STIMULI [None]
  - PULSELESS ELECTRICAL ACTIVITY [None]
  - BRADYCARDIA [None]
